FAERS Safety Report 11726645 (Version 2)
Quarter: 2015Q4

REPORT INFORMATION
  Report Type: Spontaneous
  Country: AR (occurrence: AR)
  Receive Date: 20151112
  Receipt Date: 20151125
  Transmission Date: 20160304
  Serious: Yes (Other)
  Sender: FDA-Public Use
  Company Number: AR-AMGEN-ARGSP2015118465

PATIENT
  Age: 60 Year
  Sex: Female

DRUGS (3)
  1. LEFLUNOMIDA [Concomitant]
     Active Substance: LEFLUNOMIDE
     Dosage: UNK
  2. METICORTEN [Concomitant]
     Active Substance: PREDNISONE
     Dosage: UNK
  3. ENBREL [Suspect]
     Active Substance: ETANERCEPT
     Indication: RHEUMATOID ARTHRITIS
     Dosage: 50 MG, WEEKLY
     Route: 065
     Dates: start: 20150507, end: 20151022

REACTIONS (2)
  - Enterocolitis [Recovered/Resolved]
  - Back pain [Not Recovered/Not Resolved]

NARRATIVE: CASE EVENT DATE: 20151002
